FAERS Safety Report 13204913 (Version 4)
Quarter: 2017Q3

REPORT INFORMATION
  Report Type: Spontaneous
  Country: US (occurrence: US)
  Receive Date: 20170209
  Receipt Date: 20170828
  Transmission Date: 20171127
  Serious: Yes (Other)
  Sender: FDA-Public Use
  Company Number: US-PURDUE-USA-2017-0136080

PATIENT
  Sex: Female

DRUGS (4)
  1. OXYCONTIN [Suspect]
     Active Substance: OXYCODONE HYDROCHLORIDE
     Dosage: 2 X 10 MG, BID
     Route: 048
     Dates: end: 201703
  2. GABAPENTIN. [Concomitant]
     Active Substance: GABAPENTIN
     Indication: PRODUCT USED FOR UNKNOWN INDICATION
     Route: 065
  3. OXYCONTIN [Suspect]
     Active Substance: OXYCODONE HYDROCHLORIDE
     Dosage: (2 X 20 MG) 40 MG, UNK
     Route: 048
     Dates: start: 2016
  4. OXYCONTIN [Suspect]
     Active Substance: OXYCODONE HYDROCHLORIDE
     Indication: PAIN
     Dosage: 10 MG, Q6- 8H
     Route: 048
     Dates: start: 201703

REACTIONS (11)
  - Drug dependence [Unknown]
  - Throat irritation [Unknown]
  - Drug hypersensitivity [Recovered/Resolved]
  - Swelling [Recovered/Resolved]
  - Cervical dysplasia [Not Recovered/Not Resolved]
  - Leukoplakia [Recovered/Resolved]
  - Off label use [Unknown]
  - Throat cancer [Not Recovered/Not Resolved]
  - Rickets [Unknown]
  - Diarrhoea [Unknown]
  - Pharyngeal oedema [Recovered/Resolved]
